FAERS Safety Report 6123237-2 (Version None)
Quarter: 2009Q1

REPORT INFORMATION
  Report Type: 
  Country: None (occurrence: None)
  Receive Date: 20090318
  Receipt Date: 20090303
  Transmission Date: 20090719
  Serious: No
  Sender: FDA-Public Use
  Company Number: US-JNJFOC-20090301128

PATIENT
  Sex: Female
  Weight: 63.5 kg

DRUGS (6)
  1. INVEGA [Suspect]
     Indication: BIPOLAR DISORDER
     Route: 048
  2. SEROQUIL [Concomitant]
     Indication: BIPOLAR DISORDER
     Route: 048
  3. AMBIEN [Concomitant]
     Indication: SLEEP DISORDER
     Route: 048
  4. KLONOPIN [Concomitant]
     Route: 048
  5. YAZ [Concomitant]
     Indication: CONTRACEPTION
     Route: 048
  6. TEMAZEPAM [Concomitant]
     Route: 048

REACTIONS (1)
  - HEAD TITUBATION [None]
